FAERS Safety Report 7741236-1 (Version None)
Quarter: 2011Q3

REPORT INFORMATION
  Report Type: 
  Country: None (occurrence: None)
  Receive Date: 20110909
  Receipt Date: 20110901
  Transmission Date: 20111222
  Serious: Yes (Other)
  Sender: FDA-Public Use
  Company Number: US-US-EMD SERONO, INC.-7080740

PATIENT
  Sex: Female

DRUGS (3)
  1. REBIF [Suspect]
     Indication: MULTIPLE SCLEROSIS
     Route: 058
     Dates: start: 20100818
  2. BUPROPION HCL [Concomitant]
  3. AMPYRA [Concomitant]
     Dates: start: 20110801

REACTIONS (4)
  - SUICIDAL BEHAVIOUR [None]
  - DEPRESSION [None]
  - URINARY INCONTINENCE [None]
  - GAIT DISTURBANCE [None]
